FAERS Safety Report 6278763-2 (Version None)
Quarter: 2009Q3

REPORT INFORMATION
  Report Type: 
  Country: None (occurrence: None)
  Receive Date: 20090721
  Receipt Date: 20090707
  Transmission Date: 20100115
  Serious: Yes (Hospitalization)
  Sender: FDA-Public Use
  Company Number: 235788K09USA

PATIENT
  Age: 51 Year
  Sex: Female
  Weight: 77 kg

DRUGS (5)
  1. REBIF [Suspect]
     Indication: MULTIPLE SCLEROSIS
     Dosage: 44 MCG, 3 IN 1 WEEKS, SUBCUTANEOUS
     Route: 058
     Dates: start: 20030526
  2. PARCOPA [Concomitant]
  3. STALEVO (STALEVO) [Concomitant]
  4. PAXIL [Concomitant]
  5. XANAX [Concomitant]

REACTIONS (10)
  - ARTHRITIS [None]
  - CLOSTRIDIAL INFECTION [None]
  - CONDITION AGGRAVATED [None]
  - DRUG HYPERSENSITIVITY [None]
  - EXOSTOSIS [None]
  - GAIT DISTURBANCE [None]
  - ILEUS [None]
  - MALAISE [None]
  - PARKINSON'S DISEASE [None]
  - TENDONITIS [None]
